FAERS Safety Report 4872106-4 (Version None)
Quarter: 2005Q4

REPORT INFORMATION
  Report Type: 
  Country: None (occurrence: None)
  Receive Date: 20051230
  Receipt Date: 20051221
  Transmission Date: 20060501
  Serious: Yes (Hospitalization)
  Sender: FDA-Public Use
  Company Number: FR200512003301

PATIENT
  Age: 85 Year
  Sex: Male

DRUGS (3)
  1. ALIMTA [Suspect]
     Indication: NON-SMALL CELL LUNG CANCER
     Dosage: 870 MG, OTHER, INTRAVENOUS
     Route: 042
     Dates: start: 20050930, end: 20051024
  2. ZOFRAN [Concomitant]
  3. ARANESP [Concomitant]

REACTIONS (2)
  - DERMATITIS BULLOUS [None]
  - EPIDERMOLYSIS [None]
